FAERS Safety Report 13555119 (Version 2)
Quarter: 2017Q2

REPORT INFORMATION
  Report Type: Report from Study
  Country: US (occurrence: US)
  Receive Date: 20170517
  Receipt Date: 20170628
  Transmission Date: 20170830
  Serious: Yes (Hospitalization)
  Sender: FDA-Public Use
  Company Number: US-BAYER-2017-082601

PATIENT
  Age: 76 Year
  Sex: Male

DRUGS (3)
  1. XOFIGO [Suspect]
     Active Substance: RADIUM RA-223 DICHLORIDE
     Indication: PROSTATE CANCER STAGE IV
     Dosage: 107 ?CI, ONCE EVERY 28 DAYS
     Route: 042
     Dates: start: 20170228, end: 20170228
  2. XOFIGO [Suspect]
     Active Substance: RADIUM RA-223 DICHLORIDE
     Indication: METASTASES TO BONE
     Dosage: 107 ?CI, ONCE EVERY 28 DAYS
     Route: 042
     Dates: start: 20170328, end: 20170328
  3. XOFIGO [Suspect]
     Active Substance: RADIUM RA-223 DICHLORIDE
     Indication: PROSTATE CANCER STAGE IV
     Dosage: 102.90 ?CI, ONCE EVERY 28 DAYS
     Route: 042
     Dates: start: 20170523

REACTIONS (3)
  - Back pain [None]
  - Malaise [None]
  - Hospitalisation [None]
